FAERS Safety Report 4396694-X (Version None)
Quarter: 2004Q3

REPORT INFORMATION
  Report Type: 
  Country: None (occurrence: None)
  Receive Date: 20040708
  Receipt Date: 20040623
  Transmission Date: 20050211
  Serious: Yes (Death)
  Sender: FDA-Public Use
  Company Number: 2004220849JP

PATIENT
  Age: 60 Year
  Sex: Female

DRUGS (2)
  1. EPIRUBICIN [Suspect]
     Indication: BREAST CANCER
     Dosage: 80 MG, CYCLIC, EVERY 3 WEEKS
     Dates: end: 20010601
  2. CYCLOPHOSPHAMIDE [Suspect]
     Indication: BREAST CANCER
     Dosage: 800 MG, CYCLIC, EVERY 3 WEEKS
     Dates: start: 20000707, end: 20010601

REACTIONS (6)
  - ACUTE RESPIRATORY FAILURE [None]
  - CHROMOSOME ABNORMALITY [None]
  - CHRONIC MYELOMONOCYTIC LEUKAEMIA [None]
  - MYELODYSPLASTIC SYNDROME [None]
  - RENAL FAILURE ACUTE [None]
  - TUMOUR LYSIS SYNDROME [None]
